FAERS Safety Report 4773144-2 (Version None)
Quarter: 2005Q3

REPORT INFORMATION
  Report Type: 
  Country: None (occurrence: None)
  Receive Date: 20050919
  Receipt Date: 20050907
  Transmission Date: 20060218
  Serious: Yes (Hospitalization)
  Sender: FDA-Public Use
  Company Number: CHNY2005JP01637

PATIENT
  Age: 78 Year
  Sex: Male
  Weight: 42 kg

DRUGS (5)
  1. PURSENNID (NCH)(SENNA GLYCOSIDES (CA SALTS OF PURIFIED SENNA EXTRACT)) [Suspect]
     Indication: CONSTIPATION
     Dosage: 8 TABLETS/DAY, ORAL
     Route: 048
     Dates: end: 20050818
  2. LAXOBERON (SODIUM PICOSULFATE) [Suspect]
     Dosage: 3 ML/DAY, ORAL
     Route: 048
     Dates: end: 20050818
  3. NORVASC [Concomitant]
  4. LOSARTAN POTASSIUM [Concomitant]
  5. ALINAMIN F (FURSULTIAMINE) [Concomitant]

REACTIONS (2)
  - FACE OEDEMA [None]
  - OEDEMA PERIPHERAL [None]
